FAERS Safety Report 15332848 (Version 5)
Quarter: 2018Q4

REPORT INFORMATION
  Report Type: Report from Study
  Country: None (occurrence: US)
  Receive Date: 20180830
  Receipt Date: 20181104
  Transmission Date: 20190204
  Serious: Yes (Death)
  Sender: FDA-Public Use
  Company Number: US-ABBVIE-18K-163-2469249-00

PATIENT
  Age: 73 Year
  Sex: Male
  Weight: 77.5 kg

DRUGS (8)
  1. VENCLEXTA [Suspect]
     Active Substance: VENETOCLAX
     Indication: MANTLE CELL LYMPHOMA
     Route: 048
     Dates: start: 20180316, end: 2018
  2. VENCLEXTA [Suspect]
     Active Substance: VENETOCLAX
     Route: 048
     Dates: start: 2018, end: 2018
  3. VENCLEXTA [Suspect]
     Active Substance: VENETOCLAX
     Indication: MYCOSIS FUNGOIDES STAGE IV
     Route: 048
     Dates: start: 2018, end: 2018
  4. VENCLEXTA [Suspect]
     Active Substance: VENETOCLAX
     Route: 048
     Dates: start: 2018, end: 2018
  5. VENCLEXTA [Suspect]
     Active Substance: VENETOCLAX
     Dosage: FOR 28 DAYS
     Route: 048
     Dates: start: 2018
  6. PREDNISONE. [Concomitant]
     Active Substance: PREDNISONE
     Indication: MANTLE CELL LYMPHOMA
  7. BENDAMUSTINE [Concomitant]
     Active Substance: BENDAMUSTINE
     Indication: MANTLE CELL LYMPHOMA
  8. ACALABRUTINIB. [Concomitant]
     Active Substance: ACALABRUTINIB
     Indication: MANTLE CELL LYMPHOMA

REACTIONS (2)
  - Off label use [Unknown]
  - Mantle cell lymphoma [Fatal]

NARRATIVE: CASE EVENT DATE: 201803
